FAERS Safety Report 6923312-6 (Version None)
Quarter: 2010Q3

REPORT INFORMATION
  Report Type: 
  Country: None (occurrence: None)
  Receive Date: 20100811
  Receipt Date: 20100728
  Transmission Date: 20110219
  Serious: Yes (Hospitalization)
  Sender: FDA-Public Use
  Company Number: A-NJ2010-38153

PATIENT
  Age: 52 Year
  Sex: Female

DRUGS (2)
  1. TRACLEER [Suspect]
     Indication: PULMONARY ARTERIAL HYPERTENSION
     Dosage: ORAL
     Route: 048
     Dates: start: 20090101
  2. COCAINE (COCAINE) [Suspect]

REACTIONS (4)
  - BLOOD URINE PRESENT [None]
  - DRUG TOXICITY [None]
  - DYSPNOEA [None]
  - PLEURAL EFFUSION [None]
